FAERS Safety Report 9317559 (Version 1)
Quarter: 2013Q2

REPORT INFORMATION
  Report Type: Spontaneous
  Country: US (occurrence: None)
  Receive Date: 20130529
  Receipt Date: 20130529
  Transmission Date: 20140414
  Serious: Yes (Hospitalization, Other)
  Sender: FDA-Public Use
  Company Number: None

PATIENT
  Age: 30 Year
  Sex: Male
  Weight: 95 kg

DRUGS (1)
  1. RALTEGRAVIR [Suspect]
     Dosage: EVERY 12 HOURS
     Route: 048
     Dates: start: 20121219, end: 20130316

REACTIONS (3)
  - Myalgia [None]
  - Muscle tightness [None]
  - Rhabdomyolysis [None]
